FAERS Safety Report 10012922 (Version 1)
Quarter: 2014Q1

REPORT INFORMATION
  Report Type: Report from Study
  Country: GB (occurrence: GB)
  Receive Date: 20140314
  Receipt Date: 20140314
  Transmission Date: 20141002
  Serious: Yes (Disabling)
  Sender: FDA-Public Use
  Company Number: GB-PFIZER INC-2014069563

PATIENT
  Age: 56 Year
  Sex: Male
  Weight: 81.4 kg

DRUGS (1)
  1. TEMSIROLIMUS [Suspect]
     Indication: MANTLE CELL LYMPHOMA
     Dosage: 75 MG, WEEKLY ONCE PER WEEK
     Route: 042
     Dates: start: 20131017, end: 20140128

REACTIONS (1)
  - Neuralgia [Not Recovered/Not Resolved]
